FAERS Safety Report 7398132-1 (Version None)
Quarter: 2011Q2

REPORT INFORMATION
  Report Type: 
  Country: None (occurrence: None)
  Receive Date: 20110406
  Receipt Date: 20110329
  Transmission Date: 20111010
  Serious: Yes (Other)
  Sender: FDA-Public Use
  Company Number: JP-ROCHE-768100

PATIENT
  Age: 80 Year
  Sex: Male

DRUGS (3)
  1. GLYBURIDE [Concomitant]
     Indication: DIABETES MELLITUS
     Route: 048
  2. ELPLAT [Suspect]
     Indication: LARGE INTESTINE CARCINOMA
     Route: 041
     Dates: start: 20110201
  3. XELODA [Suspect]
     Indication: LARGE INTESTINE CARCINOMA
     Dosage: DRUG: XELODA 300
     Route: 048
     Dates: start: 20100301

REACTIONS (4)
  - HYPERGLYCAEMIA [None]
  - DIZZINESS [None]
  - ALTERED STATE OF CONSCIOUSNESS [None]
  - SPEECH DISORDER [None]
